FAERS Safety Report 7255702-9 (Version None)
Quarter: 2011Q1

REPORT INFORMATION
  Report Type: 
  Country: None (occurrence: None)
  Receive Date: 20110129
  Receipt Date: 20100830
  Transmission Date: 20110831
  Serious: No
  Sender: FDA-Public Use
  Company Number: US-ABBOTT-10P-163-0666981-00

PATIENT
  Sex: Female

DRUGS (2)
  1. HUMIRA [Suspect]
     Indication: CROHN'S DISEASE
     Dosage: LOADING DOSE
     Route: 058
     Dates: start: 20100812, end: 20100812
  2. HUMIRA [Suspect]
     Dosage: ON DAY 15
     Route: 058

REACTIONS (2)
  - ABDOMINAL PAIN [None]
  - BLOODY DISCHARGE [None]
